FAERS Safety Report 21758435 (Version 1)
Quarter: 2022Q4

REPORT INFORMATION
  Report Type: Spontaneous
  Country: US (occurrence: None)
  Receive Date: 20221221
  Receipt Date: 20221221
  Transmission Date: 20230113
  Serious: No
  Sender: FDA-Public Use
  Company Number: US-ROCHE-2903919

PATIENT
  Age: 56 Year
  Sex: Female
  Weight: 70.370 kg

DRUGS (6)
  1. GAZYVA [Suspect]
     Active Substance: OBINUTUZUMAB
     Indication: Chronic lymphocytic leukaemia
     Route: 042
     Dates: start: 20210826, end: 20210826
  2. GAZYVA [Suspect]
     Active Substance: OBINUTUZUMAB
     Route: 042
     Dates: start: 20210827, end: 20210827
  3. ALLOPURINOL [Concomitant]
     Active Substance: ALLOPURINOL
     Route: 048
     Dates: start: 202106
  4. ALLOPURINOL [Concomitant]
     Active Substance: ALLOPURINOL
     Route: 048
     Dates: start: 20210805
  5. ELIQUIS [Concomitant]
     Active Substance: APIXABAN
     Indication: Thrombosis
     Route: 048
     Dates: start: 20210709
  6. LORAZEPAM [Concomitant]
     Active Substance: LORAZEPAM
     Indication: Anxiety
     Route: 048
     Dates: start: 202107

REACTIONS (13)
  - Hypoaesthesia [Unknown]
  - Peripheral swelling [Unknown]
  - Heart rate increased [Not Recovered/Not Resolved]
  - Erythema [Unknown]
  - Abdominal pain upper [Not Recovered/Not Resolved]
  - Feeling abnormal [Unknown]
  - Swelling face [Unknown]
  - Joint swelling [Unknown]
  - Platelet count decreased [Not Recovered/Not Resolved]
  - Dry throat [Not Recovered/Not Resolved]
  - Dyspepsia [Unknown]
  - Aptyalism [Unknown]
  - Dry skin [Unknown]

NARRATIVE: CASE EVENT DATE: 20210826
